FAERS Safety Report 12201011 (Version 12)
Quarter: 2018Q1

REPORT INFORMATION
  Report Type: Report from Study
  Country: GB (occurrence: GB)
  Receive Date: 20160322
  Receipt Date: 20180104
  Transmission Date: 20180508
  Serious: Yes (Death, Hospitalization, Other)
  Sender: FDA-Public Use
  Company Number: GB-INCYTE CORPORATION-2015IN000532

PATIENT

DRUGS (6)
  1. JAKAVI [Suspect]
     Active Substance: RUXOLITINIB
     Indication: MYELOFIBROSIS
     Dosage: 10 MG, BID
     Route: 048
     Dates: start: 20120726
  2. CHOLECALCIFEROL [Concomitant]
     Active Substance: CHOLECALCIFEROL
     Indication: HYPOCALCAEMIA
     Dosage: 20000 U, BIW
     Route: 048
     Dates: start: 20130529, end: 20140908
  3. ADCAL [Concomitant]
     Active Substance: CALCIUM CARBONATE
     Indication: HYPOCALCAEMIA
     Dosage: UNK UNK, BID
     Route: 048
     Dates: start: 20130529, end: 20140908
  4. ALLOPURINOL. [Concomitant]
     Active Substance: ALLOPURINOL
     Indication: PRODUCT USED FOR UNKNOWN INDICATION
     Dosage: 3000 MG, UNK
     Route: 048
     Dates: start: 20140620, end: 20140908
  5. LOPERAMIDE [Concomitant]
     Active Substance: LOPERAMIDE
     Indication: SHORT-BOWEL SYNDROME
     Dosage: 2 MG, PRN
     Route: 048
     Dates: start: 20131101, end: 20140908
  6. ALLOPURINOL. [Concomitant]
     Active Substance: ALLOPURINOL
     Indication: PROPHYLAXIS
     Dosage: 3000 MG, UNK
     Route: 048
     Dates: start: 20130529, end: 20140908

REACTIONS (17)
  - Squamous cell carcinoma [Recovered/Resolved]
  - Pain [Unknown]
  - Procedural haemorrhage [Recovered/Resolved]
  - Neutrophil count increased [Unknown]
  - Basophil count increased [Unknown]
  - Haematocrit decreased [Unknown]
  - Eosinophil count increased [Unknown]
  - Metastatic squamous cell carcinoma [Fatal]
  - Squamous cell carcinoma [Recovered/Resolved]
  - Skin infection [Recovered/Resolved]
  - Squamous cell carcinoma [Recovered/Resolved]
  - Vomiting [Unknown]
  - White blood cell count increased [Unknown]
  - Basal cell carcinoma [Recovered/Resolved]
  - Wound haemorrhage [Recovered/Resolved]
  - Mean cell haemoglobin concentration decreased [Unknown]
  - Haemoglobin decreased [Unknown]

NARRATIVE: CASE EVENT DATE: 20140806
